FAERS Safety Report 5011965-1 (Version None)
Quarter: 2006Q2

REPORT INFORMATION
  Report Type: 
  Country: None (occurrence: None)
  Receive Date: 20060526
  Receipt Date: 20060515
  Transmission Date: 20061013
  Serious: Yes (Other)
  Sender: FDA-Public Use
  Company Number: US-MERCK-0605USA02716

PATIENT
  Age: 76 Year
  Sex: Male

DRUGS (4)
  1. FOSAMAX [Suspect]
     Indication: BONE DENSITY DECREASED
     Route: 048
     Dates: start: 20040101
  2. PROSCAR [Concomitant]
     Route: 048
  3. LISINOPRIL [Concomitant]
     Route: 065
  4. BETIMOL [Concomitant]
     Route: 065

REACTIONS (4)
  - ARTHRALGIA [None]
  - FALL [None]
  - GROIN PAIN [None]
  - HIP FRACTURE [None]
